FAERS Safety Report 8488651-9 (Version None)
Quarter: 2012Q3

REPORT INFORMATION
  Report Type: 
  Country: None (occurrence: None)
  Receive Date: 20120705
  Receipt Date: 20120629
  Transmission Date: 20120928
  Serious: Yes (Death)
  Sender: FDA-Public Use
  Company Number: GB-PFIZER INC-2012157626

PATIENT
  Age: 66 Year

DRUGS (1)
  1. CRIZOTINIB [Suspect]

REACTIONS (1)
  - DEATH [None]
